FAERS Safety Report 9201778 (Version 1)
Quarter: 2013Q2

REPORT INFORMATION
  Report Type: Spontaneous
  Country: GB (occurrence: GB)
  Receive Date: 20130401
  Receipt Date: 20130401
  Transmission Date: 20140414
  Serious: Yes (Life-Threatening, Other)
  Sender: FDA-Public Use
  Company Number: GB-ASTRAZENECA-2013SE20374

PATIENT
  Age: 9 Year
  Sex: Female
  Weight: 23 kg

DRUGS (1)
  1. MEROPENEM [Suspect]
     Indication: INFECTION
     Route: 040
     Dates: start: 20130311, end: 20130311

REACTIONS (4)
  - Cyanosis [Recovered/Resolved]
  - Tachycardia [Recovered/Resolved]
  - Incorrect drug administration rate [Unknown]
  - Incorrect dose administered [Unknown]
